FAERS Safety Report 6716117-2 (Version None)
Quarter: 2010Q2

REPORT INFORMATION
  Report Type: 
  Country: None (occurrence: None)
  Receive Date: 20100507
  Receipt Date: 20100426
  Transmission Date: 20101027
  Serious: Yes (Other)
  Sender: FDA-Public Use
  Company Number: US-ROCHE-686149

PATIENT
  Sex: Female
  Weight: 122.7 kg

DRUGS (1)
  1. PEGASYS [Suspect]
     Indication: HEPATITIS C
     Dosage: FORM: PRE FILLED SYRINGE; STRENGTH: 180 UG/ 1 ML VIAL
     Route: 058
     Dates: start: 20100214

REACTIONS (17)
  - ADRENAL DISORDER [None]
  - ADVERSE DRUG REACTION [None]
  - ASTHENIA [None]
  - CHILLS [None]
  - DISORIENTATION [None]
  - DRUG HYPERSENSITIVITY [None]
  - DYSPNOEA [None]
  - FEELING ABNORMAL [None]
  - HALLUCINATION [None]
  - HEADACHE [None]
  - INJECTION SITE ERYTHEMA [None]
  - INJECTION SITE PAIN [None]
  - MUSCLE SPASMS [None]
  - NAUSEA [None]
  - NERVOUS SYSTEM DISORDER [None]
  - PAIN [None]
  - PANIC ATTACK [None]
